FAERS Safety Report 7972572-1 (Version None)
Quarter: 2011Q4

REPORT INFORMATION
  Report Type: 
  Country: None (occurrence: None)
  Receive Date: 20111209
  Receipt Date: 20111129
  Transmission Date: 20120403
  Serious: Yes (Other)
  Sender: FDA-Public Use
  Company Number: JP-2011-11592

PATIENT
  Age: 56 Year
  Sex: Female
  Weight: 47 kg

DRUGS (9)
  1. SAMSCA [Suspect]
     Indication: CARDIAC FAILURE
     Dosage: 3.75 MILLIGRAM(S), QD, ORAL
     Route: 048
     Dates: start: 20110921, end: 20110922
  2. PIMOBENDAN (PIMOBENDAN) [Concomitant]
  3. DIGOXIN [Concomitant]
  4. AMIODARONE HCL [Concomitant]
  5. LASIX [Concomitant]
  6. SLOW-K [Concomitant]
  7. DOBUPUM (DOBUTAMINE HYDROCHLORIDE) [Concomitant]
  8. BIOFERMIN R (STREPTOCOCCUS FAECALIS) [Concomitant]
  9. ALDACTONE [Concomitant]

REACTIONS (1)
  - OSMOTIC DEMYELINATION SYNDROME [None]
